FAERS Safety Report 23542539 (Version 1)
Quarter: 2024Q1

REPORT INFORMATION
  Report Type: Spontaneous
  Country: US (occurrence: US)
  Receive Date: 20240220
  Receipt Date: 20240220
  Transmission Date: 20240410
  Serious: Yes (Hospitalization, Other)
  Sender: FDA-Public Use
  Company Number: US-COLLEGIUM PHARMACEUTICAL, INC.-20240200084

PATIENT

DRUGS (7)
  1. BELBUCA [Suspect]
     Active Substance: BUPRENORPHINE HYDROCHLORIDE
     Indication: Neuralgia
     Dosage: 600 MICROGRAM, UNKNOWN
     Route: 002
     Dates: start: 2019
  2. BELBUCA [Suspect]
     Active Substance: BUPRENORPHINE HYDROCHLORIDE
     Dosage: 750 MICROGRAM, BID
     Route: 002
  3. BELBUCA [Suspect]
     Active Substance: BUPRENORPHINE HYDROCHLORIDE
     Dosage: 750 MICROGRAM, PRN (1 BOX EVERY 6 MONTHS)
     Route: 002
  4. SEROQUEL XR [Suspect]
     Active Substance: QUETIAPINE FUMARATE
     Indication: Insomnia
     Dosage: 200 MILLIGRAM, AT NIGHT
     Route: 065
  5. CYMBALTA [Concomitant]
     Active Substance: DULOXETINE HYDROCHLORIDE
     Indication: Neuralgia
     Dosage: UNK, UNKNOWN
     Route: 065
  6. CYMBALTA [Concomitant]
     Active Substance: DULOXETINE HYDROCHLORIDE
     Indication: Antidepressant therapy
  7. FARXIGA [Concomitant]
     Active Substance: DAPAGLIFLOZIN PROPANEDIOL
     Indication: Renal disorder prophylaxis
     Dosage: UNK, UNKNOWN
     Route: 065

REACTIONS (10)
  - Diabetes mellitus [Recovered/Resolved]
  - Chronic obstructive pulmonary disease [Unknown]
  - Pneumonia [Recovered/Resolved]
  - Liver disorder [Recovered/Resolved]
  - Prostatic disorder [Unknown]
  - Nasal pruritus [Not Recovered/Not Resolved]
  - Weight decreased [Unknown]
  - Hypertension [Recovering/Resolving]
  - Depression [Not Recovered/Not Resolved]
  - Product administration error [Unknown]
